FAERS Safety Report 9947031 (Version 1)
Quarter: 2014Q1

REPORT INFORMATION
  Report Type: Report from Study
  Country: US (occurrence: US)
  Receive Date: 20140303
  Receipt Date: 20140303
  Transmission Date: 20141002
  Serious: No
  Sender: FDA-Public Use
  Company Number: US-ABBVIE-13P-163-1065365-00

PATIENT
  Age: 66 Year
  Sex: Male

DRUGS (21)
  1. HUMIRA [Suspect]
     Indication: COLITIS ULCERATIVE
     Dates: start: 20130208, end: 20130208
  2. HUMIRA [Suspect]
     Dates: start: 20130222, end: 20130222
  3. HUMIRA [Suspect]
     Dates: start: 20130308, end: 20130308
  4. MULTAQ [Concomitant]
     Indication: ATRIAL FIBRILLATION
     Route: 048
  5. FERROUS SULFATE [Concomitant]
     Indication: RESTLESS LEGS SYNDROME
     Route: 048
  6. MULTIVITAMIN HP [Concomitant]
     Indication: SUPPLEMENTATION THERAPY
     Route: 048
  7. CO Q 10 [Concomitant]
     Indication: SUPPLEMENTATION THERAPY
     Route: 048
  8. ALPHA LIPOIC ACID [Concomitant]
     Route: 048
  9. LUTEIN [Concomitant]
     Indication: MACULAR DEGENERATION
     Route: 048
  10. ZEAXANTHIN [Concomitant]
     Indication: MACULAR DEGENERATION
     Route: 048
  11. MIRAPEX [Concomitant]
     Indication: RESTLESS LEGS SYNDROME
     Route: 048
  12. FISH OIL [Concomitant]
     Indication: SUPPLEMENTATION THERAPY
     Route: 048
  13. PROBIOTICS [Concomitant]
     Indication: SUPPLEMENTATION THERAPY
     Route: 048
  14. PROBIOTICS [Concomitant]
     Indication: COLITIS ULCERATIVE
  15. VESICARE [Concomitant]
     Indication: POLLAKIURIA
     Route: 048
  16. ASPIRIN (E.C.) [Concomitant]
     Indication: ATRIAL FIBRILLATION
     Route: 048
  17. AMBIEN [Concomitant]
     Indication: INSOMNIA
     Dosage: 10MG QPM
     Route: 048
  18. AMBIEN [Concomitant]
     Indication: RESTLESS LEGS SYNDROME
  19. TYLENOL [Concomitant]
     Indication: PAIN
     Route: 048
  20. LORAZEPAM [Concomitant]
     Indication: PRODUCT USED FOR UNKNOWN INDICATION
  21. PREDNISONE [Concomitant]
     Indication: PRODUCT USED FOR UNKNOWN INDICATION

REACTIONS (10)
  - Fatigue [Not Recovered/Not Resolved]
  - Fatigue [Not Recovered/Not Resolved]
  - Pyrexia [Not Recovered/Not Resolved]
  - Poor quality sleep [Not Recovered/Not Resolved]
  - Atrial fibrillation [Not Recovered/Not Resolved]
  - Ventricular extrasystoles [Recovering/Resolving]
  - Colitis ulcerative [Not Recovered/Not Resolved]
  - Haematochezia [Unknown]
  - Diarrhoea [Not Recovered/Not Resolved]
  - Headache [Not Recovered/Not Resolved]
